FAERS Safety Report 8004993-5 (Version None)
Quarter: 2011Q4

REPORT INFORMATION
  Report Type: 
  Country: None (occurrence: None)
  Receive Date: 20111220
  Receipt Date: 20111205
  Transmission Date: 20120403
  Serious: Yes (Other)
  Sender: FDA-Public Use
  Company Number: VI-1189314

PATIENT

DRUGS (2)
  1. BSS [Suspect]
     Dosage: (INTRAOCULAR)
     Route: 031
  2. MOXEZA [Suspect]
     Dosage: (INTRAOCULAR)
     Route: 031

REACTIONS (1)
  - INTRAOCULAR PRESSURE INCREASED [None]
